FAERS Safety Report 10527439 (Version 1)
Quarter: 2014Q4

REPORT INFORMATION
  Report Type: Spontaneous
  Country: BR (occurrence: None)
  Receive Date: 20141016
  Receipt Date: 20141016
  Transmission Date: 20150528
  Serious: Yes (Death, Hospitalization)
  Sender: FDA-Public Use
  Company Number: 2014SCAL000162

PATIENT
  Age: 61 Year
  Sex: Male

DRUGS (6)
  1. INSULIN [Concomitant]
     Active Substance: INSULIN NOS
  2. ENALAPRIL [Concomitant]
     Active Substance: ENALAPRIL
  3. LITHIUM CARBONATE. [Suspect]
     Active Substance: LITHIUM CARBONATE
     Indication: PSYCHIATRIC SYMPTOM
  4. ATENOLOL. [Concomitant]
     Active Substance: ATENOLOL
  5. METFORMIN [Concomitant]
     Active Substance: METFORMIN HYDROCHLORIDE
  6. THYROXINE (LEVOTHYROXINE SODIUM) [Concomitant]
     Active Substance: LEVOTHYROXINE

REACTIONS (20)
  - Ventricular hypertrophy [None]
  - Bradyarrhythmia [None]
  - Confusional state [None]
  - Hypotension [None]
  - Toxicity to various agents [None]
  - Atrial fibrillation [None]
  - Depressed level of consciousness [None]
  - Cardio-respiratory arrest [None]
  - Electrocardiogram ST segment elevation [None]
  - Bradycardia [None]
  - Left ventricular failure [None]
  - Somnolence [None]
  - Arrhythmia [None]
  - Muscle rigidity [None]
  - Ventricular tachycardia [None]
  - Fatigue [None]
  - Electrocardiogram T wave inversion [None]
  - Pulseless electrical activity [None]
  - Accidental overdose [None]
  - Metabolic encephalopathy [None]
